FAERS Safety Report 5727607-3 (Version None)
Quarter: 2008Q2

REPORT INFORMATION
  Report Type: 
  Country: None (occurrence: None)
  Receive Date: 20080501
  Receipt Date: 20080501
  Transmission Date: 20081010
  Serious: No
  Sender: FDA-Public Use
  Company Number: None

PATIENT
  Sex: Male
  Weight: 30.391 kg

DRUGS (2)
  1. SINGULAIR [Suspect]
     Indication: ASTHMA
     Dosage: 4 MG DAILY PO
     Route: 048
     Dates: start: 20030905, end: 20050705
  2. SINGULAIR [Suspect]
     Indication: ASTHMA
     Dosage: 5 MG DAILY PO
     Route: 048
     Dates: start: 20050915, end: 20070109

REACTIONS (6)
  - ABNORMAL BEHAVIOUR [None]
  - AGGRESSION [None]
  - ANXIETY [None]
  - ASOCIAL BEHAVIOUR [None]
  - FEAR [None]
  - SPEECH DISORDER [None]
